FAERS Safety Report 10605603 (Version 1)
Quarter: 2014Q4

REPORT INFORMATION
  Report Type: Report from Study
  Country: NL (occurrence: NL)
  Receive Date: 20141124
  Receipt Date: 20141124
  Transmission Date: 20150529
  Serious: Yes (Death, Hospitalization, Other)
  Sender: FDA-Public Use
  Company Number: NL-AMGEN-NLDSL2012086741

PATIENT
  Age: 19 Year
  Sex: Male

DRUGS (1)
  1. ARANESP [Suspect]
     Active Substance: DARBEPOETIN ALFA
     Indication: PRODUCT USED FOR UNKNOWN INDICATION
     Dosage: 0.4 ML (100MCG/ML), Q2WK
     Route: 065
     Dates: start: 20121107

REACTIONS (7)
  - Hospitalisation [Unknown]
  - Seizure [Unknown]
  - Mental disability [Unknown]
  - Abnormal dreams [Unknown]
  - Death [Fatal]
  - Physical disability [Unknown]
  - Energy increased [Unknown]
